FAERS Safety Report 8854822 (Version 4)
Quarter: 2012Q4

REPORT INFORMATION
  Report Type: 
  Country: TW (occurrence: TW)
  Receive Date: 20121023
  Receipt Date: 20121102
  Transmission Date: 20130627
  Serious: Yes (Death, Other)
  Sender: FDA-Public Use
  Company Number: TW-SANOFI-AVENTIS-2012SA060511

PATIENT
  Age: 76 Year
  Sex: Female

DRUGS (1)
  1. PLAVIX [Suspect]
     Indication: ACUTE CORONARY SYNDROME
     Route: 048
     Dates: start: 20120630, end: 201208

REACTIONS (2)
  - Death [Fatal]
  - Jaundice cholestatic [Not Recovered/Not Resolved]
